FAERS Safety Report 6240558-3 (Version None)
Quarter: 2009Q2

REPORT INFORMATION
  Report Type: 
  Country: None (occurrence: None)
  Receive Date: 20090623
  Receipt Date: 20080924
  Transmission Date: 20091009
  Serious: No
  Sender: FDA-Public Use
  Company Number: US-ASTRAZENECA-2008UW20101

PATIENT
  Age: 84 Year
  Sex: Female
  Weight: 77.1 kg

DRUGS (19)
  1. PULMICORT RESPULES [Suspect]
     Indication: ASTHMA
     Dosage: 0.25 MG/ML TWO TIMES A DAY
     Route: 055
     Dates: start: 20080901
  2. PULMICORT RESPULES [Suspect]
     Dosage: 0.5 MG/ML TWO TIMES A DAY
     Route: 055
  3. TEKTURNA [Suspect]
     Dosage: 300 MG
     Dates: start: 20080901
  4. LOPRESSOR [Concomitant]
  5. MICARDIS [Concomitant]
  6. AMIODARONE [Concomitant]
  7. BETA-PASTE [Concomitant]
  8. COUMADIN [Concomitant]
  9. ALLOPURINOL [Concomitant]
     Dosage: AS NEEDED
  10. NEXIUM [Concomitant]
     Route: 048
  11. ZETIA [Concomitant]
  12. GLUCOTROL [Concomitant]
  13. INSULIN [Concomitant]
  14. PLAVIX [Concomitant]
  15. LASIX [Concomitant]
  16. ASPIRIN [Concomitant]
  17. ZYRTEC [Concomitant]
  18. MULTI-VITAMIN [Concomitant]
  19. NITROGLYCERIN [Concomitant]

REACTIONS (1)
  - BLOOD PRESSURE INCREASED [None]
